FAERS Safety Report 20985488 (Version 1)
Quarter: 2022Q2

REPORT INFORMATION
  Report Type: Spontaneous
  Country: US (occurrence: US)
  Receive Date: 20220621
  Receipt Date: 20220621
  Transmission Date: 20220720
  Serious: Yes (Other)
  Sender: FDA-Public Use
  Company Number: US-BRISTOL-MYERS SQUIBB COMPANY-2022-055390

PATIENT
  Age: 77 Year
  Sex: Male

DRUGS (1)
  1. IDHIFA [Suspect]
     Active Substance: ENASIDENIB MESYLATE
     Indication: Refractory cytopenia with multilineage dysplasia
     Route: 048
     Dates: start: 20220523

REACTIONS (2)
  - Constipation [Unknown]
  - Full blood count decreased [Unknown]
